FAERS Safety Report 9498860 (Version 6)
Quarter: 2023Q1

REPORT INFORMATION
  Report Type: Other
  Country: CA (occurrence: None)
  Receive Date: 20130904
  Receipt Date: 20230217
  Transmission Date: 20230417
  Serious: Yes (Hospitalization, Other)
  Sender: FDA-Public Use
  Company Number: CA-ROCHE-1132763

PATIENT
  Sex: Male
  Weight: 74 kg

DRUGS (26)
  1. ACTEMRA [Suspect]
     Active Substance: TOCILIZUMAB
     Indication: Rheumatoid arthritis
     Dosage: FIRST RPAP INFUSION: 19-NOV-2010.  BATCH/LOT FROM 27-JUL-2012: B20061 (DEC-2013); B20071 (DEC- 2013)
     Route: 042
     Dates: start: 20101119, end: 20120727
  2. ACTEMRA [Suspect]
     Active Substance: TOCILIZUMAB
     Dosage: RESTART 11-DEC-2015. NO PIRS RECEIVED BETWEEN 10-FEB-2017 TO 18-JUN-2018. DOSAGE NOTED ACCORDING TO
     Route: 042
     Dates: start: 20151211, end: 20181130
  3. ACTEMRA [Suspect]
     Active Substance: TOCILIZUMAB
     Route: 042
     Dates: start: 20160607
  4. ACTEMRA [Suspect]
     Active Substance: TOCILIZUMAB
     Dosage: 38 INFUSION
     Route: 042
     Dates: start: 20170710
  5. ACTEMRA [Suspect]
     Active Substance: TOCILIZUMAB
     Dosage: INFUSION NUMBER-41
     Route: 042
     Dates: start: 20171030
  6. ACTEMRA [Suspect]
     Active Substance: TOCILIZUMAB
     Dosage: INFUSION NUMBER-45
     Route: 042
     Dates: start: 20180227
  7. ACTEMRA [Suspect]
     Active Substance: TOCILIZUMAB
     Dosage: INFUSION NO. 46.
     Route: 042
     Dates: start: 20180326
  8. ACTEMRA [Suspect]
     Active Substance: TOCILIZUMAB
     Route: 042
     Dates: start: 20180522
  9. ACTEMRA [Suspect]
     Active Substance: TOCILIZUMAB
     Route: 042
     Dates: start: 20180618
  10. ACTEMRA [Suspect]
     Active Substance: TOCILIZUMAB
     Dosage: ADDITIONAL BATCH/LOT FROM 27-NOV-2019: B2078 (31-MAY-2020)
     Route: 042
     Dates: start: 20181228, end: 20191127
  11. ACTEMRA [Suspect]
     Active Substance: TOCILIZUMAB
     Dosage: ADDITIONAL BATCH/LOT FROM 08-DEC-2021: B4018B21 30-NOV-2023
     Route: 042
     Dates: start: 20191227
  12. ACTEMRA [Suspect]
     Active Substance: TOCILIZUMAB
     Route: 042
     Dates: start: 20210526
  13. ACTEMRA [Suspect]
     Active Substance: TOCILIZUMAB
     Route: 042
     Dates: start: 2008, end: 2010
  14. ACTEMRA [Suspect]
     Active Substance: TOCILIZUMAB
     Route: 042
     Dates: start: 20191227
  15. CODEINE [Concomitant]
     Active Substance: CODEINE
     Indication: Arthralgia
     Route: 065
     Dates: end: 201512
  16. CELEBREX [Concomitant]
     Active Substance: CELECOXIB
  17. PAXIL [Concomitant]
     Active Substance: PAROXETINE HYDROCHLORIDE
  18. ATIVAN [Concomitant]
     Active Substance: LORAZEPAM
  19. METHOTREXATE [Concomitant]
     Active Substance: METHOTREXATE
     Indication: Product used for unknown indication
  20. FOLIC ACID [Concomitant]
     Active Substance: FOLIC ACID
     Indication: Product used for unknown indication
  21. PREDNISONE [Concomitant]
     Active Substance: PREDNISONE
     Indication: Product used for unknown indication
  22. ROSUVASTATIN [Concomitant]
     Active Substance: ROSUVASTATIN
     Indication: Product used for unknown indication
  23. CRESTOR [Concomitant]
     Active Substance: ROSUVASTATIN CALCIUM
     Indication: Product used for unknown indication
  24. PAROXETINE [Concomitant]
     Active Substance: PAROXETINE
     Indication: Product used for unknown indication
  25. ADALAT [Concomitant]
     Active Substance: NIFEDIPINE
     Indication: Raynaud^s phenomenon
     Route: 065
  26. CALCIUM [Concomitant]
     Active Substance: CALCIUM

REACTIONS (52)
  - Arthritis bacterial [Unknown]
  - Arthritis infective [Unknown]
  - Wrist surgery [Recovering/Resolving]
  - Muscle rupture [Unknown]
  - Infection [Not Recovered/Not Resolved]
  - Foot deformity [Recovered/Resolved]
  - Limb injury [Unknown]
  - Upper limb fracture [Unknown]
  - Arthralgia [Not Recovered/Not Resolved]
  - Pain in extremity [Recovered/Resolved]
  - Oedema [Not Recovered/Not Resolved]
  - Influenza like illness [Recovered/Resolved]
  - Pain [Not Recovered/Not Resolved]
  - Abdominal pain [Unknown]
  - Constipation [Unknown]
  - Blood pressure fluctuation [Unknown]
  - Body temperature decreased [Unknown]
  - Blood pressure diastolic increased [Unknown]
  - Heart rate decreased [Unknown]
  - Blood pressure systolic decreased [Unknown]
  - Fatigue [Unknown]
  - Therapeutic response decreased [Unknown]
  - Musculoskeletal stiffness [Unknown]
  - Nasopharyngitis [Recovering/Resolving]
  - Cough [Not Recovered/Not Resolved]
  - Neck pain [Recovering/Resolving]
  - Therapeutic product effect decreased [Unknown]
  - Arthritis [Unknown]
  - Nodule [Unknown]
  - Sinus congestion [Not Recovered/Not Resolved]
  - Hot flush [Not Recovered/Not Resolved]
  - Disability assessment scale score increased [Not Recovered/Not Resolved]
  - Infusion related reaction [Unknown]
  - Sciatica [Unknown]
  - Productive cough [Not Recovered/Not Resolved]
  - Bronchitis [Unknown]
  - Blood pressure systolic increased [Unknown]
  - Joint stiffness [Unknown]
  - Therapeutic product effect decreased [Unknown]
  - Back pain [Not Recovered/Not Resolved]
  - Mobility decreased [Not Recovered/Not Resolved]
  - Sinusitis [Recovered/Resolved]
  - Off label use [Unknown]
  - Oxygen saturation decreased [Unknown]
  - Blood pressure systolic abnormal [Unknown]
  - Blood pressure diastolic abnormal [Unknown]
  - Respiratory rate increased [Unknown]
  - Blood pressure increased [Unknown]
  - Heart rate increased [Unknown]
  - Localised infection [Unknown]
  - Ill-defined disorder [Unknown]
  - Tooth disorder [Unknown]

NARRATIVE: CASE EVENT DATE: 20120101
